FAERS Safety Report 13897586 (Version 3)
Quarter: 2017Q4

REPORT INFORMATION
  Report Type: Spontaneous
  Country: CA (occurrence: CA)
  Receive Date: 20170823
  Receipt Date: 20171010
  Transmission Date: 20180320
  Serious: Yes (Other)
  Sender: FDA-Public Use
  Company Number: CA-PFIZER INC-2017360762

PATIENT
  Age: 81 Year
  Sex: Female

DRUGS (17)
  1. LORAZEPAM. [Concomitant]
     Active Substance: LORAZEPAM
     Dosage: 1 MG, AT BEDTIME AS NEEDED
  2. IBRANCE [Suspect]
     Active Substance: PALBOCICLIB
     Dosage: 125 MG, CYCLIC (DAILY 21 DAYS AND THEN 7 DAYS OFF)
     Route: 048
     Dates: start: 20170530
  3. MYRBETRIQ [Concomitant]
     Active Substance: MIRABEGRON
     Dosage: 25 MG, DAILY
  4. LATANOPROST. [Concomitant]
     Active Substance: LATANOPROST
     Dosage: 0.0005%, 1 DROP  IN EACH EYE AT BEDTIME
  5. OXYCODONE [Concomitant]
     Active Substance: OXYCODONE
     Dosage: 5/325 MG,  1-2 EVERY 4 HOURS AS NEEDED
  6. PANTOPRAZOLE [Concomitant]
     Active Substance: PANTOPRAZOLE
     Dosage: 40 MG, DAILY
  7. LANTUS [Concomitant]
     Active Substance: INSULIN GLARGINE
     Dosage: 38 IU, DAILY AT BEDTIME
     Route: 058
  8. AMLODIPINE BESILATE [Concomitant]
     Active Substance: AMLODIPINE BESYLATE
     Dosage: 5 MG, DAILY
  9. INDOMETHACIN /00003801/ [Concomitant]
     Active Substance: INDOMETHACIN
     Dosage: 50 MG, 3X/DAY
  10. ENALAPRIL [Concomitant]
     Active Substance: ENALAPRIL
     Dosage: 20 MG, DAILY
  11. COLCHICINE. [Concomitant]
     Active Substance: COLCHICINE
     Dosage: 0. 6MG ,2 , TWICE A DAY
  12. HUMALOG [Concomitant]
     Active Substance: INSULIN LISPRO
     Dosage: 10 IU, 3X/DAY
     Route: 058
  13. FUROSEMIDE. [Concomitant]
     Active Substance: FUROSEMIDE
     Dosage: 20 MG, DAILY
  14. EPREX [Concomitant]
     Active Substance: ERYTHROPOIETIN
     Dosage: 60000 UNK, WEEKLY-HGB{110G/L
     Route: 058
  15. ALLOPURINOL. [Concomitant]
     Active Substance: ALLOPURINOL
     Dosage: 300 MG, DAILY
  16. WARFARIN [Concomitant]
     Active Substance: WARFARIN
     Dosage: 1.5 MG, DAILY
  17. KETODERM /00532501/ [Concomitant]
     Active Substance: KETOCONAZOLE
     Dosage: 2 % CREAM

REACTIONS (2)
  - Neoplasm progression [Not Recovered/Not Resolved]
  - Pancytopenia [Unknown]
